FAERS Safety Report 6429973-2 (Version None)
Quarter: 2009Q4

REPORT INFORMATION
  Report Type: 
  Country: None (occurrence: None)
  Receive Date: 20091106
  Receipt Date: 20091027
  Transmission Date: 20100525
  Serious: Yes (Other)
  Sender: FDA-Public Use
  Company Number: US-BAYER-200937593NA

PATIENT
  Age: 17 Year
  Sex: Female
  Weight: 129 kg

DRUGS (2)
  1. YAZ [Suspect]
     Indication: VAGINAL HAEMORRHAGE
     Dosage: TOTAL DAILY DOSE: 1 DF
     Route: 048
  2. YASMIN [Suspect]
     Indication: VAGINAL HAEMORRHAGE
     Route: 048

REACTIONS (1)
  - RENAL FAILURE [None]
